FAERS Safety Report 5344063-8 (Version None)
Quarter: 2007Q2

REPORT INFORMATION
  Report Type: 
  Country: None (occurrence: None)
  Receive Date: 20070604
  Receipt Date: 20070529
  Transmission Date: 20071010
  Serious: Yes (Hospitalization)
  Sender: FDA-Public Use
  Company Number: A0653841A

PATIENT
  Age: 56 Year
  Sex: Male
  Weight: 80 kg

DRUGS (4)
  1. WELLBUTRIN XL [Suspect]
     Indication: DEPRESSION
     Dosage: 300MG PER DAY
     Route: 048
     Dates: start: 20070212, end: 20070316
  2. LEXAPRO [Suspect]
     Indication: DEPRESSION
     Dosage: 10MG PER DAY
     Route: 048
     Dates: start: 20070205, end: 20070316
  3. ALCOHOL [Suspect]
     Route: 048
     Dates: start: 20070317
  4. LOTREL [Concomitant]
     Dates: start: 20040101

REACTIONS (21)
  - AGGRESSION [None]
  - AGITATION [None]
  - ALCOHOLISM [None]
  - ASTHENIA [None]
  - BLOOD PRESSURE INCREASED [None]
  - CARDIAC MURMUR [None]
  - DECREASED APPETITE [None]
  - DEHYDRATION [None]
  - DEPRESSION [None]
  - DRUG SCREEN POSITIVE [None]
  - DRUG WITHDRAWAL SYNDROME [None]
  - FEELING GUILTY [None]
  - GRANDIOSITY [None]
  - IMPULSIVE BEHAVIOUR [None]
  - INSOMNIA [None]
  - IRRITABILITY [None]
  - MANIA [None]
  - ORAL INTAKE REDUCED [None]
  - SUICIDAL IDEATION [None]
  - TACHYCARDIA [None]
  - TREMOR [None]
